FAERS Safety Report 9335875 (Version 1)
Quarter: 2013Q2

REPORT INFORMATION
  Report Type: Spontaneous
  Country: US (occurrence: US)
  Receive Date: 20130606
  Receipt Date: 20130606
  Transmission Date: 20140414
  Serious: No
  Sender: FDA-Public Use
  Company Number: US-AMGEN-USASP2013003103

PATIENT
  Age: 64 Year
  Sex: Female
  Weight: 91.5 kg

DRUGS (2)
  1. PROLIA [Suspect]
     Indication: OSTEOPOROSIS
     Dosage: UNK
     Dates: start: 2012, end: 2012
  2. ZEMPLAR [Suspect]
     Indication: SECONDARY HYPERTHYROIDISM
     Dosage: UNK
     Dates: start: 201210

REACTIONS (1)
  - Blood parathyroid hormone increased [Recovered/Resolved]
